FAERS Safety Report 5514891-4 (Version None)
Quarter: 2007Q4

REPORT INFORMATION
  Report Type: 
  Country: None (occurrence: None)
  Receive Date: 20071113
  Receipt Date: 20060921
  Transmission Date: 20080405
  Serious: Yes (Hospitalization)
  Sender: FDA-Public Use
  Company Number: A0620976A

PATIENT
  Age: 69 Year
  Sex: Male

DRUGS (7)
  1. COREG [Suspect]
     Indication: ATRIAL FIBRILLATION
     Dosage: 50MG VARIABLE DOSE
     Route: 048
  2. TIKOSYN [Concomitant]
  3. FUROSEMIDE [Concomitant]
  4. VERAPAMIL [Concomitant]
  5. COUMADIN [Concomitant]
  6. LIPITOR [Concomitant]
  7. ALDACTONE [Concomitant]

REACTIONS (2)
  - DYSPNOEA [None]
  - FATIGUE [None]
